FAERS Safety Report 17840950 (Version 2)
Quarter: 2020Q2

REPORT INFORMATION
  Report Type: Spontaneous
  Country: CA (occurrence: CA)
  Receive Date: 20200529
  Receipt Date: 20200619
  Transmission Date: 20200714
  Serious: Yes (Other)
  Sender: FDA-Public Use
  Company Number: CA-PFIZER INC-2020208163

PATIENT
  Age: 60 Year
  Sex: Female

DRUGS (4)
  1. ETOPOSIDE. [Suspect]
     Active Substance: ETOPOSIDE
     Indication: ENDOMETRIAL ADENOCARCINOMA
     Dosage: 100 MG/M2 (DAYS 1 TO 5 FOR FIVE CYCLES OF 21 DAYS)
  2. ETOPOSIDE. [Suspect]
     Active Substance: ETOPOSIDE
     Dosage: UNK, CYCLIC (DOSE REDUCTIONS)
  3. FILGRASTIM [Suspect]
     Active Substance: FILGRASTIM
     Indication: ENDOMETRIAL ADENOCARCINOMA
     Dosage: UNK, CYCLIC
  4. CISPLATIN. [Suspect]
     Active Substance: CISPLATIN
     Indication: ENDOMETRIAL ADENOCARCINOMA
     Dosage: 20 MG/M2, CYCLIC (DAYS 1 TO 5 FOR FIVE CYCLES OF 21 DAYS)

REACTIONS (3)
  - Neuropathy peripheral [Unknown]
  - Neutropenia [Unknown]
  - Deafness [Unknown]
